FAERS Safety Report 8505678-9 (Version None)
Quarter: 2012Q3

REPORT INFORMATION
  Report Type: 
  Country: None (occurrence: None)
  Receive Date: 20120712
  Receipt Date: 20080619
  Transmission Date: 20120928
  Serious: Yes (Other)
  Sender: FDA-Public Use
  Company Number: CO-PFIZER INC-2012165084

PATIENT
  Age: 70 Year
  Sex: Male

DRUGS (9)
  1. LIPITOR [Suspect]
     Dosage: 10 MG, 1X/DAY
  2. METOPROLOL [Concomitant]
     Dosage: 50 MG, 1X/DAY
  3. NORVASC [Suspect]
     Dosage: 5 MG, 1X/DAY
  4. FUROSEMIDE [Concomitant]
     Dosage: 30 MG, 1X/DAY
  5. SPIRONOLACTONE [Concomitant]
     Dosage: 25 MG, 1X/DAY
  6. ACETYLSALICYLIC ACID [Concomitant]
     Dosage: 100 MG, 1X/DAY
  7. DIGOXIN [Concomitant]
     Dosage: 0.25 MG, 1X/DAY
  8. OLMESARTAN MEDOXOMIL [Suspect]
     Dosage: 20 MG, 1X/DAY
  9. LOSARTAN [Concomitant]
     Dosage: 50 MG, 2X/DAY

REACTIONS (9)
  - CARDIOMYOPATHY [None]
  - ATRIAL FIBRILLATION [None]
  - COUGH [None]
  - DYSPNOEA [None]
  - ATRIAL FLUTTER [None]
  - LEUKOCYTURIA [None]
  - HAEMATURIA [None]
  - RENAL FAILURE CHRONIC [None]
  - ORTHOPNOEA [None]
